FAERS Safety Report 13388564 (Version 3)
Quarter: 2017Q2

REPORT INFORMATION
  Report Type: Report from Study
  Country: None (occurrence: NL)
  Receive Date: 20170331
  Receipt Date: 20170621
  Transmission Date: 20170830
  Serious: Yes (Other)
  Sender: FDA-Public Use
  Company Number: NL-ABBVIE-17P-114-1921822-00

PATIENT
  Age: 39 Year
  Sex: Female
  Weight: 87 kg

DRUGS (5)
  1. TAMOXIFEN [Concomitant]
     Active Substance: TAMOXIFEN
     Indication: PRODUCT USED FOR UNKNOWN INDICATION
     Route: 048
  2. LUCRIN DEPOT [Suspect]
     Active Substance: LEUPROLIDE ACETATE
     Route: 050
  3. FOSINOPRIL [Concomitant]
     Active Substance: FOSINOPRIL
     Indication: PRODUCT USED FOR UNKNOWN INDICATION
     Route: 048
  4. LUCRIN DEPOT [Suspect]
     Active Substance: LEUPROLIDE ACETATE
     Indication: BREAST CANCER
     Route: 050
     Dates: start: 20160711
  5. LUCRIN DEPOT [Suspect]
     Active Substance: LEUPROLIDE ACETATE
     Route: 050

REACTIONS (2)
  - Meningioma [Recovering/Resolving]
  - Eye inflammation [Not Recovered/Not Resolved]

NARRATIVE: CASE EVENT DATE: 201608
